FAERS Safety Report 18558406 (Version 1)
Quarter: 2020Q4

REPORT INFORMATION
  Report Type: Spontaneous
  Country: US (occurrence: US)
  Receive Date: 20201005
  Receipt Date: 20201005
  Transmission Date: 20210114
  Serious: No
  Sender: FDA-Public Use
  Company Number: None

PATIENT
  Age: 24 Year
  Sex: Female

DRUGS (2)
  1. UMIFENOVIR. [Suspect]
     Active Substance: UMIFENOVIR
     Indication: COVID-19
     Dates: start: 2020
  2. INTERFERON [Suspect]
     Active Substance: INTERFERON

REACTIONS (6)
  - Faeces discoloured [None]
  - Product use issue [None]
  - Leukopenia [None]
  - Diarrhoea [None]
  - Vomiting [None]
  - Nausea [None]
